FAERS Safety Report 6296200-9 (Version None)
Quarter: 2009Q3

REPORT INFORMATION
  Report Type: 
  Country: None (occurrence: None)
  Receive Date: 20090804
  Receipt Date: 20090729
  Transmission Date: 20100115
  Serious: Yes (Other)
  Sender: FDA-Public Use
  Company Number: ES-JNJFOC-20090800196

PATIENT
  Age: 61 Year
  Sex: Female

DRUGS (1)
  1. KETOCONOZALE [Suspect]
     Indication: ONYCHOMYCOSIS
     Route: 048

REACTIONS (2)
  - HEPATIC STEATOSIS [None]
  - HYPERTRANSAMINASAEMIA [None]
